FAERS Safety Report 22532701 (Version 1)
Quarter: 2023Q2

REPORT INFORMATION
  Report Type: Spontaneous
  Country: IT (occurrence: IT)
  Receive Date: 20230607
  Receipt Date: 20230607
  Transmission Date: 20230722
  Serious: Yes (Hospitalization)
  Sender: FDA-Public Use
  Company Number: None

PATIENT
  Age: 39 Year
  Sex: Female

DRUGS (6)
  1. TEGRETOL [Suspect]
     Active Substance: CARBAMAZEPINE
     Indication: Product used for unknown indication
     Dosage: 30 DF, ONCE/SINGLE (TOTAL)
     Route: 048
     Dates: start: 20200809, end: 20200809
  2. QUETIAPINE [Suspect]
     Active Substance: QUETIAPINE
     Indication: Product used for unknown indication
     Dosage: 60 DF, ONCE/SINGLE (TABLET)
     Route: 048
     Dates: start: 20200809, end: 20200809
  3. ACETAMINOPHEN [Suspect]
     Active Substance: ACETAMINOPHEN
     Indication: Product used for unknown indication
     Dosage: 32 G, ONCE/SINGLE (TOTAL)
     Route: 048
     Dates: start: 20200809, end: 20200809
  4. DELORAZEPAM [Suspect]
     Active Substance: DELORAZEPAM
     Indication: Product used for unknown indication
     Dosage: 20 ML, ONCE/SINGLE (TOTAL)
     Route: 048
     Dates: start: 20200809, end: 20200809
  5. INVEGA [Suspect]
     Active Substance: PALIPERIDONE
     Indication: Product used for unknown indication
     Dosage: 28 DF, ONCE/SINGLE (TOTAL)
     Route: 048
     Dates: start: 20200809, end: 20200809
  6. IBUPROFEN [Suspect]
     Active Substance: IBUPROFEN
     Indication: Product used for unknown indication
     Dosage: 24 DF, ONCE/SINGLE (TOTAL)
     Route: 048
     Dates: start: 20200809, end: 20200809

REACTIONS (5)
  - Intentional overdose [Recovering/Resolving]
  - Intentional self-injury [Recovering/Resolving]
  - Bradyphrenia [Recovering/Resolving]
  - Hypotension [Recovering/Resolving]
  - Somnolence [Recovering/Resolving]

NARRATIVE: CASE EVENT DATE: 20200809
